FAERS Safety Report 8280810-3 (Version None)
Quarter: 2012Q2

REPORT INFORMATION
  Report Type: 
  Country: None (occurrence: None)
  Receive Date: 20120412
  Receipt Date: 20120405
  Transmission Date: 20120825
  Serious: Yes (Other)
  Sender: FDA-Public Use
  Company Number: CA-ABBOTT-12P-028-0922319-00

PATIENT
  Sex: Female

DRUGS (2)
  1. HUMIRA [Suspect]
     Indication: CROHN'S DISEASE
     Route: 058
     Dates: start: 20080903, end: 20120229
  2. IMURAN [Concomitant]
     Indication: CROHN'S DISEASE
     Dosage: UNKNOWN
     Dates: end: 20120301

REACTIONS (3)
  - INTESTINAL RESECTION [None]
  - ADHESION [None]
  - INCISIONAL HERNIA [None]
